FAERS Safety Report 12610921 (Version 8)
Quarter: 2017Q1

REPORT INFORMATION
  Report Type: Report from Study
  Country: US (occurrence: US)
  Receive Date: 20160801
  Receipt Date: 20170228
  Transmission Date: 20170428
  Serious: Yes (Death, Hospitalization, Other)
  Sender: FDA-Public Use
  Company Number: US-ACTELION-A-US2016-139569

PATIENT
  Age: 80 Year
  Sex: Female
  Weight: 56.24 kg

DRUGS (8)
  1. UPTRAVI [Suspect]
     Active Substance: SELEXIPAG
     Dosage: 1200 MCG, BID
     Route: 048
  2. UPTRAVI [Suspect]
     Active Substance: SELEXIPAG
     Indication: PULMONARY ARTERIAL HYPERTENSION
     Dosage: 200 MCG, BID
     Route: 048
     Dates: start: 20160506
  3. COUMADIN [Concomitant]
     Active Substance: WARFARIN SODIUM
  4. UPTRAVI [Suspect]
     Active Substance: SELEXIPAG
     Dosage: 600 MCG, BID
     Route: 048
  5. ADCIRCA [Concomitant]
     Active Substance: TADALAFIL
  6. UPTRAVI [Suspect]
     Active Substance: SELEXIPAG
     Dosage: 1000 MCG, BID
     Route: 048
  7. UPTRAVI [Suspect]
     Active Substance: SELEXIPAG
     Dosage: 800 MCG, BID
     Route: 048
  8. LETAIRIS [Concomitant]
     Active Substance: AMBRISENTAN
     Dosage: 5 MG, UNK

REACTIONS (20)
  - Device related infection [Recovering/Resolving]
  - Lower respiratory tract infection [Unknown]
  - Dialysis [Unknown]
  - Back pain [Unknown]
  - Systemic infection [Unknown]
  - Central nervous system infection [Recovering/Resolving]
  - Fluid retention [Unknown]
  - Postoperative wound infection [Unknown]
  - Anal incontinence [Unknown]
  - Death [Fatal]
  - Hypersomnia [Unknown]
  - Abnormal behaviour [Recovering/Resolving]
  - Internal haemorrhage [Unknown]
  - Groin pain [Recovered/Resolved]
  - Fistula [Unknown]
  - Clostridium difficile infection [Unknown]
  - Diarrhoea [Unknown]
  - Sepsis [Recovering/Resolving]
  - Diet refusal [Recovering/Resolving]
  - Lethargy [Unknown]

NARRATIVE: CASE EVENT DATE: 201607
